FAERS Safety Report 5650957-6 (Version None)
Quarter: 2008Q1

REPORT INFORMATION
  Report Type: 
  Country: None (occurrence: None)
  Receive Date: 20080305
  Receipt Date: 20080225
  Transmission Date: 20080703
  Serious: Yes (Hospitalization)
  Sender: FDA-Public Use
  Company Number: CZ-ROCHE-546835

PATIENT
  Age: 13 Year
  Sex: Female

DRUGS (1)
  1. ROACCUTANE [Suspect]
     Indication: ACNE
     Route: 048
     Dates: start: 20071201, end: 20080207

REACTIONS (5)
  - ATAXIA [None]
  - CEREBELLAR SYNDROME [None]
  - NYSTAGMUS [None]
  - TINNITUS [None]
  - VERTIGO [None]
